FAERS Safety Report 24576363 (Version 1)
Quarter: 2024Q4

REPORT INFORMATION
  Report Type: Spontaneous
  Country: GB (occurrence: GB)
  Receive Date: 20241104
  Receipt Date: 20241104
  Transmission Date: 20250115
  Serious: Yes (Hospitalization, Other)
  Sender: NOVARTIS
  Company Number: GB-002147023-NVSC2024GB211178

PATIENT
  Age: 15 Year
  Sex: Female

DRUGS (1)
  1. EVEROLIMUS [Suspect]
     Active Substance: EVEROLIMUS
     Indication: Tuberous sclerosis complex
     Dosage: 4 MG, QD
     Route: 065

REACTIONS (3)
  - Gastroenteritis [Unknown]
  - Diarrhoea haemorrhagic [Unknown]
  - Irritable bowel syndrome [Unknown]
